FAERS Safety Report 11688395 (Version 1)
Quarter: 2015Q4

REPORT INFORMATION
  Report Type: Report from Study
  Country: US (occurrence: US)
  Receive Date: 20151101
  Receipt Date: 20151101
  Transmission Date: 20160304
  Serious: Yes (Other)
  Sender: FDA-Public Use
  Company Number: PHEH2015US021690

PATIENT
  Sex: Male

DRUGS (1)
  1. PROMACTA [Suspect]
     Active Substance: ELTROMBOPAG OLAMINE
     Indication: PRODUCT USED FOR UNKNOWN INDICATION
     Route: 065

REACTIONS (2)
  - Spinal cord disorder [Unknown]
  - Liver disorder [Unknown]
